FAERS Safety Report 16196959 (Version 1)
Quarter: 2019Q2

REPORT INFORMATION
  Report Type: Spontaneous
  Country: US (occurrence: US)
  Receive Date: 20190311
  Receipt Date: 20190311
  Transmission Date: 20190711
  Serious: No
  Sender: FDA-Public Use
  Company Number: None

PATIENT
  Age: 69 Year
  Sex: Male
  Weight: 87.09 kg

DRUGS (1)
  1. ZOFRAN [Suspect]
     Active Substance: ONDANSETRON HYDROCHLORIDE
     Indication: PROPHYLAXIS OF NAUSEA AND VOMITING
     Dosage: ?          QUANTITY:4 MG MILLIGRAM(S);OTHER FREQUENCY:ONCE PRE-OP;?
     Route: 042
     Dates: start: 20190303

REACTIONS (2)
  - Flushing [None]
  - Hiccups [None]

NARRATIVE: CASE EVENT DATE: 20190303
